FAERS Safety Report 14681746 (Version 2)
Quarter: 2018Q1

REPORT INFORMATION
  Report Type: Spontaneous
  Country: US (occurrence: US)
  Receive Date: 20180326
  Receipt Date: 20180326
  Transmission Date: 20180509
  Serious: No
  Sender: FDA-Public Use
  Company Number: US-VIFOR (INTERNATIONAL) INC.-VIT-2017-12130

PATIENT
  Age: 58 Year
  Sex: Female

DRUGS (23)
  1. CALCITRIOL. [Concomitant]
     Active Substance: CALCITRIOL
  2. CLONIDINE HYDROCHLORIDE. [Concomitant]
     Active Substance: CLONIDINE HYDROCHLORIDE
  3. HUMALOG [Concomitant]
     Active Substance: INSULIN LISPRO
  4. PROAIR HFA [Concomitant]
     Active Substance: ALBUTEROL SULFATE
  5. METAMUCIL [Concomitant]
     Active Substance: PLANTAGO SEED
  6. VELTASSA [Suspect]
     Active Substance: PATIROMER
     Route: 048
     Dates: start: 20171019
  7. MUCINEX [Concomitant]
     Active Substance: GUAIFENESIN
  8. CYANOCOBALAMIN. [Concomitant]
     Active Substance: CYANOCOBALAMIN
  9. AMLODIPINE BESILATE [Concomitant]
     Active Substance: AMLODIPINE BESYLATE
  10. SINGULAIR [Concomitant]
     Active Substance: MONTELUKAST SODIUM
  11. XANAX XR [Concomitant]
     Active Substance: ALPRAZOLAM
  12. FOLIC ACID. [Concomitant]
     Active Substance: FOLIC ACID
  13. ASPIRIN 81 [Concomitant]
     Active Substance: ASPIRIN
  14. NEXIUM [Concomitant]
     Active Substance: ESOMEPRAZOLE MAGNESIUM
  15. CRESTOR [Concomitant]
     Active Substance: ROSUVASTATIN CALCIUM
  16. SKELAXIN [Concomitant]
     Active Substance: METAXALONE
  17. FISH OIL CONCENTRATE [Concomitant]
     Active Substance: FISH OIL
  18. FERROUS SULFATE. [Concomitant]
     Active Substance: FERROUS SULFATE
  19. LEXAPRO [Concomitant]
     Active Substance: ESCITALOPRAM OXALATE
  20. LUNESTA [Concomitant]
     Active Substance: ESZOPICLONE
  21. VELTASSA [Suspect]
     Active Substance: PATIROMER
     Indication: HYPERKALAEMIA
     Route: 048
     Dates: start: 20171006
  22. ERGOCALCIFEROL. [Concomitant]
     Active Substance: ERGOCALCIFEROL
  23. COLACE [Concomitant]
     Active Substance: DOCUSATE SODIUM

REACTIONS (4)
  - Blood potassium increased [Unknown]
  - Muscle spasms [Unknown]
  - Constipation [Recovering/Resolving]
  - Abdominal distension [Unknown]

NARRATIVE: CASE EVENT DATE: 201710
